FAERS Safety Report 7024885-8 (Version None)
Quarter: 2010Q4

REPORT INFORMATION
  Report Type: 
  Country: None (occurrence: None)
  Receive Date: 20101001
  Receipt Date: 20100923
  Transmission Date: 20110411
  Serious: Yes (Hospitalization)
  Sender: FDA-Public Use
  Company Number: CA-MERCK-1009USA04598

PATIENT
  Age: 22 Year
  Sex: Male

DRUGS (1)
  1. PROPECIA [Suspect]
     Indication: ALOPECIA
     Route: 048
     Dates: start: 20070901, end: 20100601

REACTIONS (6)
  - ERECTILE DYSFUNCTION [None]
  - PENIS DISORDER [None]
  - SEMEN ANALYSIS ABNORMAL [None]
  - SPERM COUNT DECREASED [None]
  - SUICIDE ATTEMPT [None]
  - TESTICULAR DISORDER [None]
